FAERS Safety Report 6326972-6 (Version None)
Quarter: 2009Q3

REPORT INFORMATION
  Report Type: 
  Country: None (occurrence: None)
  Receive Date: 20090820
  Receipt Date: 20090810
  Transmission Date: 20100115
  Serious: Yes (Other)
  Sender: FDA-Public Use
  Company Number: ADR12022009

PATIENT
  Age: 55 Year
  Sex: Male

DRUGS (5)
  1. PRAVASTATIN [Suspect]
     Indication: BLOOD CHOLESTEROL INCREASED
     Dosage: 20 MG + 40 MG ORAL
     Route: 048
     Dates: start: 20070110, end: 20070911
  2. PRAVASTATIN [Suspect]
     Indication: BLOOD CHOLESTEROL INCREASED
     Dosage: 20 MG + 40 MG ORAL
     Route: 048
     Dates: start: 20070911
  3. ATENOLOL [Concomitant]
  4. CLIOQUINOL [Concomitant]
  5. FLUMETASONE [Concomitant]

REACTIONS (10)
  - AMNESIA [None]
  - ASTHENIA [None]
  - CONFUSIONAL STATE [None]
  - GRIP STRENGTH DECREASED [None]
  - INSOMNIA [None]
  - LIBIDO DECREASED [None]
  - MUSCULAR WEAKNESS [None]
  - NOCTURIA [None]
  - SLEEP DISORDER [None]
  - SWOLLEN TONGUE [None]
